FAERS Safety Report 19003850 (Version 1)
Quarter: 2021Q1

REPORT INFORMATION
  Report Type: Spontaneous
  Country: CN (occurrence: CN)
  Receive Date: 20210312
  Receipt Date: 20210312
  Transmission Date: 20210420
  Serious: Yes (Other)
  Sender: FDA-Public Use
  Company Number: CN-JNJFOC-20210322200

PATIENT
  Age: 76 Year
  Sex: Male
  Weight: 60.5 kg

DRUGS (2)
  1. OXYCONTIN [Suspect]
     Active Substance: OXYCODONE HYDROCHLORIDE
     Indication: PAIN
     Dosage: 50 MILLIGRAM, EVERY 12 HRS
     Route: 048
     Dates: start: 20191107, end: 20191110
  2. TRAMADOL HYDROCHLORIDE. [Suspect]
     Active Substance: TRAMADOL HYDROCHLORIDE
     Indication: PAIN
     Dosage: 0.1 GRAM, EVERY 12 HRS
     Route: 048
     Dates: start: 20191009, end: 20191102

REACTIONS (2)
  - Hallucination [Recovering/Resolving]
  - Therapeutic product effect incomplete [Unknown]

NARRATIVE: CASE EVENT DATE: 20191110
